FAERS Safety Report 24722018 (Version 1)
Quarter: 2024Q4

REPORT INFORMATION
  Report Type: Spontaneous
  Country: JP (occurrence: JP)
  Receive Date: 20241211
  Receipt Date: 20241211
  Transmission Date: 20250115
  Serious: Yes (Other)
  Sender: PFIZER
  Company Number: JP-PFIZER INC-PV202400157251

PATIENT
  Age: 81 Year
  Sex: Female

DRUGS (4)
  1. METHYLPREDNISOLONE SODIUM SUCCINATE [Suspect]
     Active Substance: METHYLPREDNISOLONE SODIUM SUCCINATE
     Indication: Immune thrombocytopenia
     Dosage: PULSE THERAPY
  2. RITUXIMAB [Suspect]
     Active Substance: RITUXIMAB
     Indication: Immune thrombocytopenia
     Dosage: ON DAY 8 AND 15
  3. ELTROMBOPAG [Concomitant]
     Active Substance: ELTROMBOPAG
     Dosage: FROM DAY 5
  4. FOSTAMATINIB [Concomitant]
     Active Substance: FOSTAMATINIB
     Dosage: FROM DAY 17

REACTIONS (3)
  - Delirium [Unknown]
  - Off label use [Unknown]
  - Drug effective for unapproved indication [Unknown]
